FAERS Safety Report 20682791 (Version 1)
Quarter: 2022Q2

REPORT INFORMATION
  Report Type: Spontaneous
  Country: TR (occurrence: TR)
  Receive Date: 20220407
  Receipt Date: 20220407
  Transmission Date: 20220721
  Serious: Yes (Hospitalization)
  Sender: FDA-Public Use
  Company Number: TR-NOVOPROD-904607

PATIENT
  Sex: Male
  Weight: 3.47 kg

DRUGS (4)
  1. LEVEMIR [Suspect]
     Active Substance: INSULIN DETEMIR
     Indication: Gestational diabetes
     Dosage: 3 IU DAILY
     Route: 064
     Dates: start: 20211210, end: 20220225
  2. NOVORAPID [Suspect]
     Active Substance: INSULIN ASPART
     Indication: Gestational diabetes
     Dosage: 2 IU, TID
     Route: 064
     Dates: start: 20211210, end: 20220225
  3. FERROUS GLYCINE SULFATE [Concomitant]
     Active Substance: FERROUS GLYCINE SULFATE
     Indication: Pregnancy
     Dosage: 1000 MG, QD
     Route: 064
     Dates: end: 20220225
  4. DOCONEXENT\ICOSAPENT\TOCOPHEROL [Concomitant]
     Active Substance: DOCONEXENT\ICOSAPENT\TOCOPHEROL
     Indication: Pregnancy
     Dosage: ONCE A DAY
     Route: 064
     Dates: end: 20220225

REACTIONS (2)
  - Jaundice neonatal [Recovered/Resolved]
  - Foetal exposure during pregnancy [Recovered/Resolved]

NARRATIVE: CASE EVENT DATE: 20211210
